FAERS Safety Report 17499857 (Version 1)
Quarter: 2020Q1

REPORT INFORMATION
  Report Type: Spontaneous
  Country: SE (occurrence: SE)
  Receive Date: 20200304
  Receipt Date: 20200304
  Transmission Date: 20200409
  Serious: Yes (Death, Other)
  Sender: FDA-Public Use
  Company Number: SE-AMGEN-SWESP2020036397

PATIENT
  Age: 68 Year
  Sex: Male

DRUGS (12)
  1. METOTAB [Suspect]
     Active Substance: METHOTREXATE SODIUM
     Indication: RHEUMATOID ARTHRITIS
     Dosage: 10 MG, WEEKLY (4 TABLETS ONCE A WEEK)
     Route: 065
     Dates: start: 20190619, end: 20191230
  2. TROMBYL [Concomitant]
     Active Substance: ASPIRIN
     Dosage: 75 MILLIGRAM, QD
     Dates: start: 20170609
  3. ENALAPRIL KRKA [Concomitant]
     Active Substance: ENALAPRIL MALEATE
     Dosage: 2.5 MILLIGRAM, QD
     Dates: start: 20170609
  4. PARACETAMOL [Concomitant]
     Active Substance: ACETAMINOPHEN
     Dosage: 2 GRAM, QD
     Dates: start: 20170609
  5. GLYTRIN [GLYCERYL TRINITRATE] [Concomitant]
     Dosage: 0.4 MG/DOSE, AS NEEDED (1-2 DOSES AS NEEDED)
     Dates: start: 20170609
  6. OMEPRAZOL SANDOZ [OMEPRAZOLE] [Concomitant]
     Dosage: 20 MILLIGRAM, QD
     Dates: start: 20170609
  7. CELEBRA [Concomitant]
     Active Substance: CELECOXIB
     Dosage: 200 MILLIGRAM, QD
     Dates: start: 20170609
  8. METOPROLOL TEVA [Concomitant]
     Active Substance: METOPROLOL
     Dosage: 25 MILLIGRAM, QD
     Dates: start: 20170609
  9. ATORVASTATIN TEVA [Concomitant]
     Active Substance: ATORVASTATIN
     Dosage: 40 MILLIGRAM, QD
     Dates: start: 20180614
  10. ENBREL [Suspect]
     Active Substance: ETANERCEPT
     Indication: RHEUMATOID ARTHRITIS
     Dosage: 50 MILLIGRAM, QWK
     Route: 058
     Dates: start: 20170610, end: 20191230
  11. PREDNISOLON ALTERNOVA [Concomitant]
     Active Substance: PREDNISOLONE
     Dosage: 2.5 MILLIGRAM, QD
     Dates: start: 20170609
  12. IMDUR [Concomitant]
     Active Substance: ISOSORBIDE MONONITRATE
     Dosage: 120 MILLIGRAM, QD
     Dates: start: 20180614

REACTIONS (7)
  - Bicytopenia [Fatal]
  - Pancytopenia [Fatal]
  - Bone marrow failure [Fatal]
  - Bacterial infection [Fatal]
  - Candida infection [Fatal]
  - Cardiopulmonary failure [Fatal]
  - Herpes simplex [Fatal]

NARRATIVE: CASE EVENT DATE: 20191230
